FAERS Safety Report 5322173-9 (Version None)
Quarter: 2007Q2

REPORT INFORMATION
  Report Type: 
  Country: None (occurrence: None)
  Receive Date: 20070426
  Receipt Date: 20070411
  Transmission Date: 20071010
  Serious: Yes (Hospitalization, Other)
  Sender: FDA-Public Use
  Company Number: 16290

PATIENT
  Age: 62 Year
  Sex: Female

DRUGS (6)
  1. CARBOPLATIN [Suspect]
     Indication: OVARIAN CANCER
  2. PACLITAXEL [Suspect]
     Indication: OVARIAN CANCER
  3. ALTRETAMINE [Suspect]
     Indication: OVARIAN CANCER
  4. TOPOTECAN [Suspect]
     Indication: OVARIAN CANCER
  5. FLUID [Concomitant]
  6. PAIN MEDICATIONS [Concomitant]

REACTIONS (13)
  - ABDOMINAL DISTENSION [None]
  - ABDOMINAL PAIN [None]
  - ANOREXIA [None]
  - BLOOD CALCIUM ABNORMAL [None]
  - BLOOD LACTATE DEHYDROGENASE INCREASED [None]
  - BLOOD PHOSPHORUS ABNORMAL [None]
  - BLOOD POTASSIUM ABNORMAL [None]
  - BLOOD URIC ACID ABNORMAL [None]
  - DISEASE PROGRESSION [None]
  - ELECTROLYTE IMBALANCE [None]
  - NAUSEA [None]
  - SMALL INTESTINAL OBSTRUCTION [None]
  - TUMOUR LYSIS SYNDROME [None]
